FAERS Safety Report 19116913 (Version 2)
Quarter: 2021Q3

REPORT INFORMATION
  Report Type: Report from Study
  Country: US (occurrence: US)
  Receive Date: 20210409
  Receipt Date: 20210705
  Transmission Date: 20211014
  Serious: Yes (Other)
  Sender: FDA-Public Use
  Company Number: US-BIOVITRUM-2021US2846

PATIENT
  Age: 59 Year
  Sex: Male

DRUGS (1)
  1. KINERET [Suspect]
     Active Substance: ANAKINRA
     Indication: STILL^S DISEASE
     Route: 058
     Dates: start: 20190529

REACTIONS (10)
  - Bradycardia [Unknown]
  - Hepatitis B [Unknown]
  - Blood glucose decreased [Unknown]
  - Abdominal discomfort [Unknown]
  - Fatigue [Unknown]
  - Mass [Unknown]
  - Asthenia [Unknown]
  - Irregular breathing [Unknown]
  - Off label use [Unknown]
  - Renal disorder [Unknown]

NARRATIVE: CASE EVENT DATE: 20190529
